FAERS Safety Report 10677113 (Version 1)
Quarter: 2014Q4

REPORT INFORMATION
  Report Type: Spontaneous
  Country: JP (occurrence: JP)
  Receive Date: 20141226
  Receipt Date: 20141226
  Transmission Date: 20150529
  Serious: Yes (Hospitalization, Other)
  Sender: FDA-Public Use
  Company Number: JP-BAYER-2014-187045

PATIENT
  Age: 37 Year
  Sex: Female

DRUGS (2)
  1. RITODRINE [Suspect]
     Active Substance: RITODRINE
     Indication: ABORTION THREATENED
     Route: 048
  2. ACETYLSALICYLIC ACID({=100 MG) [Suspect]
     Active Substance: ASPIRIN
     Indication: THROMBOSIS PROPHYLAXIS
     Route: 048

REACTIONS (6)
  - Rhabdomyolysis [None]
  - Blood creatine phosphokinase increased [None]
  - Abortion threatened [Recovered/Resolved]
  - Labour induction [Recovered/Resolved]
  - Restless legs syndrome [Recovering/Resolving]
  - Maternal exposure during pregnancy [None]
